FAERS Safety Report 8502867-4 (Version None)
Quarter: 2012Q3

REPORT INFORMATION
  Report Type: 
  Country: None (occurrence: None)
  Receive Date: 20120705
  Receipt Date: 20120705
  Transmission Date: 20120928
  Serious: Yes (Death)
  Sender: FDA-Public Use
  Company Number: None

PATIENT
  Sex: Male
  Weight: 94.3482 kg

DRUGS (4)
  1. PROPOFOL [Suspect]
     Indication: SEDATION
     Dosage: IV
     Route: 042
     Dates: start: 20120620, end: 20120622
  2. PROPOFOL [Suspect]
     Indication: SURGERY
     Dosage: IV
     Route: 042
     Dates: start: 20120620, end: 20120622
  3. PROPOFOL [Suspect]
     Indication: SEDATION
     Dosage: IV
     Route: 042
     Dates: start: 20120618, end: 20120618
  4. PROPOFOL [Suspect]
     Indication: SURGERY
     Dosage: IV
     Route: 042
     Dates: start: 20120618, end: 20120618

REACTIONS (10)
  - PROPOFOL INFUSION SYNDROME [None]
  - RENAL FAILURE ACUTE [None]
  - DIALYSIS [None]
  - ACUTE HEPATIC FAILURE [None]
  - ACUTE RESPIRATORY FAILURE [None]
  - METABOLIC ACIDOSIS [None]
  - RENAL TUBULAR NECROSIS [None]
  - PLEURAL EFFUSION [None]
  - SEPSIS [None]
  - GENERAL PHYSICAL HEALTH DETERIORATION [None]
